FAERS Safety Report 9973267 (Version 2)
Quarter: 2014Q1

REPORT INFORMATION
  Report Type: Report from Study
  Country: US (occurrence: US)
  Receive Date: 20140306
  Receipt Date: 20140306
  Transmission Date: 20141002
  Serious: No
  Sender: FDA-Public Use
  Company Number: US-ABBVIE-13P-163-1153140-00

PATIENT
  Age: 55 Year
  Sex: Male

DRUGS (5)
  1. HUMIRA [Suspect]
     Indication: PSORIASIS
     Route: 058
     Dates: start: 20130824
  2. PROZAC [Concomitant]
     Indication: OBSESSIVE-COMPULSIVE DISORDER
     Dosage: 40MG DAILY
  3. HYDROXYZINE [Concomitant]
     Indication: PRURITUS
  4. DIAZEPAM [Concomitant]
     Indication: ANXIETY
     Dosage: 10MG IN MORNING DAILY AND 1/2 TABLET IN AFTERNOON AS NEEDED
  5. NORCO [Concomitant]
     Indication: PAIN
     Dosage: 10/325MG AS NEEDED

REACTIONS (7)
  - Sensation of heaviness [Recovering/Resolving]
  - Pain in extremity [Recovering/Resolving]
  - Injection site pain [Recovering/Resolving]
  - Injection site rash [Recovering/Resolving]
  - Rash pruritic [Recovering/Resolving]
  - Psoriasis [Not Recovered/Not Resolved]
  - Feeling abnormal [Not Recovered/Not Resolved]
